FAERS Safety Report 8306443-8 (Version None)
Quarter: 2012Q2

REPORT INFORMATION
  Report Type: 
  Country: None (occurrence: None)
  Receive Date: 20120423
  Receipt Date: 20120412
  Transmission Date: 20120825
  Serious: Yes (Life-Threatening, Hospitalization)
  Sender: FDA-Public Use
  Company Number: DE-BRISTOL-MYERS SQUIBB COMPANY-16402273

PATIENT
  Age: 59 Year
  Sex: Female
  Weight: 55 kg

DRUGS (4)
  1. CISPLATIN [Suspect]
     Indication: NON-SMALL CELL LUNG CANCER
     Dosage: RECENT DOSE 25JAN12 NO OF INF:2
     Route: 042
     Dates: start: 20120105
  2. GEMCITABINE [Suspect]
     Indication: NON-SMALL CELL LUNG CANCER
     Dosage: ON DAY 1 AND DAY 8 OF EACH CYCLE 3WK CYCLE RECENT DOSE 1FEB12 NO OF INF:4
     Route: 042
     Dates: start: 20120105
  3. CETUXIMAB [Suspect]
     Indication: NON-SMALL CELL LUNG CANCER
     Dosage: PRODUCT STRENGTH IS 5MG/ML RECENT DOSE 1FEB12 NO OF INF:5
     Route: 042
     Dates: start: 20120105
  4. CILENGITIDE [Suspect]
     Indication: NON-SMALL CELL LUNG CANCER
     Dosage: RECENT DOSE 1FEB12 NO OF INF:4
     Route: 042
     Dates: start: 20120105

REACTIONS (3)
  - DIARRHOEA [None]
  - VOMITING [None]
  - PANCYTOPENIA [None]
